FAERS Safety Report 22041570 (Version 1)
Quarter: 2023Q1

REPORT INFORMATION
  Report Type: Spontaneous
  Country: US (occurrence: US)
  Receive Date: 20230227
  Receipt Date: 20230227
  Transmission Date: 20230418
  Serious: Yes (Life-Threatening, Hospitalization, Other)
  Sender: FDA-Public Use
  Company Number: US-MLMSERVICE-20230215-4111855-1

PATIENT
  Age: 22 Year
  Sex: Female

DRUGS (6)
  1. DEXAMETHASONE [Suspect]
     Active Substance: DEXAMETHASONE
     Indication: T-cell type acute leukaemia
     Dosage: INDUCTION THERAPY
     Route: 037
     Dates: start: 20220616, end: 2022
  2. PEG/L-ASPARAGINASE [Suspect]
     Active Substance: PEGASPARGASE
     Indication: T-cell type acute leukaemia
     Route: 037
     Dates: start: 20220616, end: 2022
  3. PEG/L-ASPARAGINASE [Suspect]
     Active Substance: PEGASPARGASE
     Dosage: 2 DOSES OF 2,500 U/M2, MOST RECENT WAS 7 DAYS PRIOR.
     Route: 037
     Dates: start: 2022, end: 2022
  4. DAUNORUBICIN [Suspect]
     Active Substance: DAUNORUBICIN
     Indication: T-cell type acute leukaemia
     Dosage: INDUCTION THERAPY
     Route: 037
     Dates: start: 20220616, end: 2022
  5. VINCRISTINE [Suspect]
     Active Substance: VINCRISTINE
     Indication: T-cell type acute leukaemia
     Route: 037
     Dates: start: 20220616, end: 2022
  6. CYTARABINE\METHOTREXATE [Suspect]
     Active Substance: CYTARABINE\METHOTREXATE
     Indication: T-cell type acute leukaemia
     Dosage: INDUCTION THERAPY
     Route: 037
     Dates: start: 20220616, end: 2022

REACTIONS (5)
  - Hyperglycaemic hyperosmolar nonketotic syndrome [Recovered/Resolved]
  - Insulin resistance [Recovered/Resolved]
  - Acute respiratory failure [Recovered/Resolved]
  - Neuropathy peripheral [Unknown]
  - Gastritis [Unknown]

NARRATIVE: CASE EVENT DATE: 20220101
